FAERS Safety Report 10724652 (Version 1)
Quarter: 2015Q1

REPORT INFORMATION
  Report Type: Spontaneous
  Country: US (occurrence: None)
  Receive Date: 20150116
  Receipt Date: 20150116
  Transmission Date: 20150721
  Serious: Yes (Death, Hospitalization, Other)
  Sender: FDA-Public Use
  Company Number: US-ZYDUS-006368

PATIENT
  Age: 26 Year
  Sex: Male

DRUGS (4)
  1. LISINOPRIL. [Suspect]
     Active Substance: LISINOPRIL
     Indication: HYPERTENSION
  2. AMLODIPINE [Suspect]
     Active Substance: AMLODIPINE BESYLATE
     Indication: HYPERTENSION
  3. METOPROLOL [Suspect]
     Active Substance: METOPROLOL
     Indication: HYPERTENSION
  4. SOYA OIL [Suspect]
     Active Substance: SOYBEAN OIL
     Route: 040

REACTIONS (7)
  - Hypotension [None]
  - Hyperkalaemia [None]
  - Renal failure [None]
  - Acute respiratory failure [None]
  - Bradycardia [None]
  - Acidosis [None]
  - Intentional overdose [None]
